FAERS Safety Report 5738964-6 (Version None)
Quarter: 2008Q2

REPORT INFORMATION
  Report Type: 
  Country: None (occurrence: None)
  Receive Date: 20080515
  Receipt Date: 20080408
  Transmission Date: 20081010
  Serious: Yes (Hospitalization, Other)
  Sender: FDA-Public Use
  Company Number: ES-ASTRAZENECA-2008AC00909

PATIENT
  Age: 25 Year
  Sex: Female

DRUGS (5)
  1. MEROPENEM [Interacting]
     Indication: PNEUMONIA
     Route: 042
  2. VALPROIC ACID [Interacting]
     Indication: EPILEPSY
  3. VALPROIC ACID [Interacting]
     Route: 042
  4. PHENYTOIN [Suspect]
     Indication: EPILEPSY
  5. PHENYTOIN [Suspect]
     Dosage: DOSE REDUCED

REACTIONS (4)
  - ANTICONVULSANT DRUG LEVEL DECREASED [None]
  - CONVULSION [None]
  - DRUG INTERACTION [None]
  - DRUG LEVEL BELOW THERAPEUTIC [None]
